FAERS Safety Report 4620050-X (Version None)
Quarter: 2005Q1

REPORT INFORMATION
  Report Type: 
  Country: None (occurrence: None)
  Receive Date: 20050324
  Receipt Date: 20050324
  Transmission Date: 20050727
  Serious: Yes (Hospitalization, Other)
  Sender: FDA-Public Use
  Company Number: None

PATIENT
  Sex: Male
  Weight: 119.5 kg

DRUGS (3)
  1. IRINOTECAN HCL [Suspect]
     Dosage: 180 MG /M2 IV OVER 90 MIN ON DAY 1
     Route: 042
     Dates: start: 20041214, end: 20041214
  2. LEUCOVORIN CALCIUM [Suspect]
     Dosage: 400 MG /M2 IV OVER 2 HRS, POST IRINOTECAN ADMINISTRATION
     Route: 042
     Dates: start: 20041214, end: 20041214
  3. FLUOROURACIL [Suspect]
     Dosage: 400 MG /M2 IV BOLUS INJECT , POST LV ADMIN, THEN 2400 MG/M2 CONTINUOUS IV INFUSION OVER 46-48 HOURS
     Route: 042
     Dates: start: 20041214, end: 20051214

REACTIONS (1)
  - INTESTINAL OBSTRUCTION [None]
